FAERS Safety Report 4649974-4 (Version None)
Quarter: 2005Q2

REPORT INFORMATION
  Report Type: 
  Country: None (occurrence: None)
  Receive Date: 20050428
  Receipt Date: 20050415
  Transmission Date: 20051028
  Serious: Yes (Other)
  Sender: FDA-Public Use
  Company Number: 2005-04-1605

PATIENT
  Age: 58 Year
  Sex: Female
  Weight: 70 kg

DRUGS (2)
  1. INTERFERON ALFA INJECTABLE SOLUTION (LIKE INTRON A) [Suspect]
     Indication: CARCINOID TUMOUR
     Dosage: SUBCUTANEOUSS
     Route: 058
     Dates: start: 20000401, end: 20020601
  2. SIMVASTATIN [Concomitant]

REACTIONS (5)
  - BILIARY TRACT DISORDER [None]
  - CARCINOID TUMOUR [None]
  - MALIGNANT NEOPLASM PROGRESSION [None]
  - METASTASES TO BONE [None]
  - METASTASES TO LIVER [None]
